FAERS Safety Report 8462491-9 (Version None)
Quarter: 2012Q2

REPORT INFORMATION
  Report Type: 
  Country: None (occurrence: None)
  Receive Date: 20120625
  Receipt Date: 20120611
  Transmission Date: 20120825
  Serious: Yes (Hospitalization, Other)
  Sender: FDA-Public Use
  Company Number: DK-MYLANLABS-2012S1011992

PATIENT
  Age: 56 Year
  Sex: Female

DRUGS (4)
  1. VALSARTAN  AND HYDROCHLOROTHIAZIDE [Suspect]
     Indication: BLOOD PRESSURE INCREASED
     Dates: start: 20091127
  2. LISINOPRIL [Suspect]
     Indication: BLOOD PRESSURE INCREASED
  3. ADALAT [Concomitant]
     Indication: PRODUCT USED FOR UNKNOWN INDICATION
  4. NORETHINDRONE AND ESTRADIOL [Concomitant]
     Indication: PRODUCT USED FOR UNKNOWN INDICATION

REACTIONS (9)
  - ALOPECIA [None]
  - HYPERSENSITIVITY [None]
  - NYSTAGMUS [None]
  - DYSPNOEA [None]
  - MENIERE'S DISEASE [None]
  - HEADACHE [None]
  - HYPERACUSIS [None]
  - CHEST PAIN [None]
  - MUSCLE TIGHTNESS [None]
